FAERS Safety Report 8965596 (Version 1)
Quarter: 2012Q4

REPORT INFORMATION
  Report Type: Spontaneous
  Country: US (occurrence: None)
  Receive Date: 20121212
  Receipt Date: 20121212
  Transmission Date: 20130627
  Serious: No
  Sender: FDA-Public Use
  Company Number: None

PATIENT
  Age: 68 Year
  Sex: Female

DRUGS (1)
  1. SPIRIVA [Suspect]
     Indication: CARDIAC  ABLATION
     Route: 055
     Dates: start: 20110601, end: 20121210

REACTIONS (2)
  - Product packaging quantity issue [None]
  - Capsule physical issue [None]
